FAERS Safety Report 10728601 (Version 4)
Quarter: 2015Q4

REPORT INFORMATION
  Report Type: Report from Study
  Country: US (occurrence: US)
  Receive Date: 20150122
  Receipt Date: 20151211
  Transmission Date: 20160304
  Serious: Yes (Hospitalization, Other)
  Sender: FDA-Public Use
  Company Number: US-AMGEN-USASP2015004915

PATIENT
  Age: 54 Year
  Sex: Male

DRUGS (3)
  1. ENBREL [Suspect]
     Active Substance: ETANERCEPT
     Indication: RHEUMATOID ARTHRITIS
     Dosage: 50 MG, QWK
     Route: 065
     Dates: start: 19970415, end: 201501
  2. HUMIRA [Suspect]
     Active Substance: ADALIMUMAB
     Indication: PRODUCT USED FOR UNKNOWN INDICATION
     Dosage: UNK
     Route: 065
  3. CIMZIA [Concomitant]
     Active Substance: CERTOLIZUMAB PEGOL
     Indication: RHEUMATOID ARTHRITIS
     Dosage: UNK

REACTIONS (18)
  - Limb discomfort [Not Recovered/Not Resolved]
  - Foot deformity [Not Recovered/Not Resolved]
  - Arthropathy [Not Recovered/Not Resolved]
  - Joint lock [Not Recovered/Not Resolved]
  - Joint range of motion decreased [Not Recovered/Not Resolved]
  - Neck pain [Unknown]
  - Myalgia [Unknown]
  - Elbow operation [Recovered/Resolved]
  - Drug ineffective [Recovered/Resolved]
  - Fall [Recovered/Resolved]
  - Musculoskeletal stiffness [Unknown]
  - Arthralgia [Not Recovered/Not Resolved]
  - Rash [Recovered/Resolved]
  - Joint swelling [Not Recovered/Not Resolved]
  - Neck mass [Not Recovered/Not Resolved]
  - Spinal fusion surgery [Unknown]
  - Pain in extremity [Unknown]
  - Neuropathy peripheral [Unknown]

NARRATIVE: CASE EVENT DATE: 2009
